FAERS Safety Report 19046455 (Version 1)
Quarter: 2021Q1

REPORT INFORMATION
  Report Type: Spontaneous
  Country: DE (occurrence: DE)
  Receive Date: 20210323
  Receipt Date: 20210323
  Transmission Date: 20210420
  Serious: Yes (Other)
  Sender: FDA-Public Use
  Company Number: NVSC2021DE064779

PATIENT
  Sex: Female

DRUGS (1)
  1. ZOMETA [Suspect]
     Active Substance: ZOLEDRONIC ACID
     Indication: BREAST CANCER METASTATIC
     Dosage: UNK (EVERY 4 WEEK)
     Route: 065
     Dates: start: 201802, end: 201912

REACTIONS (2)
  - Osteonecrosis of jaw [Unknown]
  - Osteonecrosis [Unknown]
